FAERS Safety Report 14527793 (Version 3)
Quarter: 2018Q3

REPORT INFORMATION
  Report Type: Spontaneous
  Country: US (occurrence: US)
  Receive Date: 20180213
  Receipt Date: 20180809
  Transmission Date: 20181010
  Serious: No
  Sender: FDA-Public Use
  Company Number: US-ACTELION-A-NJ2018-167245

PATIENT
  Age: 62 Year
  Sex: Female

DRUGS (2)
  1. OPSUMIT [Suspect]
     Active Substance: MACITENTAN
     Indication: PULMONARY ARTERIAL HYPERTENSION
     Dosage: 10 MG, QD
     Route: 048
     Dates: start: 20180104, end: 201801
  2. TADALAFIL [Concomitant]
     Active Substance: TADALAFIL
     Dosage: UNK, QD
     Route: 048
     Dates: start: 201703

REACTIONS (10)
  - Memory impairment [Recovering/Resolving]
  - Ear infection [Recovering/Resolving]
  - Swelling [Unknown]
  - Sinusitis [Recovering/Resolving]
  - Depressed mood [Unknown]
  - Rhinorrhoea [Unknown]
  - Therapy non-responder [Unknown]
  - Swelling face [Unknown]
  - Nervousness [Recovering/Resolving]
  - Abdominal distension [Unknown]

NARRATIVE: CASE EVENT DATE: 201801
